FAERS Safety Report 5022077-5 (Version None)
Quarter: 2006Q2

REPORT INFORMATION
  Report Type: 
  Country: None (occurrence: None)
  Receive Date: 20060609
  Receipt Date: 20060531
  Transmission Date: 20061013
  Serious: Yes (Other)
  Sender: FDA-Public Use
  Company Number: 2006AP02546

PATIENT
  Age: 67 Year
  Sex: Female
  Weight: 56 kg

DRUGS (5)
  1. DIPRIVAN [Suspect]
     Indication: INDUCTION OF ANAESTHESIA
     Route: 042
  2. OXYGEN [Concomitant]
     Indication: INDUCTION OF ANAESTHESIA
     Route: 055
  3. SEVOFLURANE [Concomitant]
     Indication: INDUCTION OF ANAESTHESIA
     Route: 055
  4. FENTANYL [Concomitant]
     Indication: INDUCTION OF ANAESTHESIA
  5. MORPHINE [Concomitant]
     Indication: EPIDURAL ANAESTHESIA
     Route: 008

REACTIONS (2)
  - ANAESTHETIC COMPLICATION [None]
  - RENAL FAILURE ACUTE [None]
